FAERS Safety Report 5930028-1 (Version None)
Quarter: 2008Q4

REPORT INFORMATION
  Report Type: 
  Country: None (occurrence: None)
  Receive Date: 20081024
  Receipt Date: 20081013
  Transmission Date: 20090506
  Serious: Yes (Hospitalization, Other)
  Sender: FDA-Public Use
  Company Number: AU-PFIZER INC-2008086199

PATIENT
  Age: 88 Year
  Sex: Male

DRUGS (3)
  1. ZOLOFT [Suspect]
     Dates: start: 20071101
  2. CARTIA XT [Concomitant]
  3. COVERSYL [Concomitant]

REACTIONS (14)
  - ASPARTATE AMINOTRANSFERASE INCREASED [None]
  - ASTHENIA [None]
  - BLOOD ALBUMIN DECREASED [None]
  - CONJUNCTIVITIS [None]
  - DIARRHOEA [None]
  - DIPLOPIA [None]
  - DIZZINESS [None]
  - GENERAL PHYSICAL HEALTH DETERIORATION [None]
  - GLOBULINS INCREASED [None]
  - JOINT SWELLING [None]
  - LYMPHADENOPATHY [None]
  - LYMPHOMA [None]
  - RASH [None]
  - TREATMENT NONCOMPLIANCE [None]
